FAERS Safety Report 24890104 (Version 1)
Quarter: 2025Q1

REPORT INFORMATION
  Report Type: Spontaneous
  Country: US (occurrence: None)
  Receive Date: 20250124
  Receipt Date: 20250124
  Transmission Date: 20250409
  Serious: No
  Sender: FDA-CTU
  Company Number: None

PATIENT
  Age: 70 Year
  Sex: Female
  Weight: 105.75 kg

DRUGS (12)
  1. NICOTINE TRANSDERMAL SYSTEM [Suspect]
     Active Substance: NICOTINE
     Indication: Post-acute COVID-19 syndrome
     Dosage: 14 PATCHES DAILY TOPICAL
     Route: 061
     Dates: start: 20241118, end: 20250121
  2. ESTRADIOL [Concomitant]
     Active Substance: ESTRADIOL
  3. PROMETRIUM [Concomitant]
     Active Substance: PROGESTERONE
  4. VALSARTAN [Concomitant]
     Active Substance: VALSARTAN
  5. HYDROCHLOROTHIAZIDE [Concomitant]
     Active Substance: HYDROCHLOROTHIAZIDE
  6. D [Concomitant]
  7. TOCOPHEROL [Concomitant]
     Active Substance: TOCOPHEROL
  8. FISH OIL [Concomitant]
     Active Substance: FISH OIL
  9. methylation [Concomitant]
  10. DIETARY SUPPLEMENT [Concomitant]
     Active Substance: DIETARY SUPPLEMENT
  11. VITAMIN K [Concomitant]
     Active Substance: PHYTONADIONE
  12. C [Concomitant]

REACTIONS (3)
  - Application site pruritus [None]
  - Application site erythema [None]
  - Application site hypertrophy [None]

NARRATIVE: CASE EVENT DATE: 20250103
